FAERS Safety Report 13072756 (Version 1)
Quarter: 2016Q4

REPORT INFORMATION
  Report Type: Spontaneous
  Country: US (occurrence: US)
  Receive Date: 20161229
  Receipt Date: 20161229
  Transmission Date: 20170207
  Serious: Yes (Hospitalization)
  Sender: FDA-Public Use
  Company Number: US-SA-2016SA081890

PATIENT
  Age: 60 Year
  Sex: Female
  Weight: 62 kg

DRUGS (16)
  1. BLINDED THERAPY [Suspect]
     Active Substance: INVESTIGATIONAL PRODUCT
     Indication: NEOPLASM
     Route: 048
     Dates: start: 20160202
  2. SYNTHROID [Concomitant]
     Active Substance: LEVOTHYROXINE SODIUM
     Indication: HYPOTHYROIDISM
     Route: 048
     Dates: start: 2005
  3. PALONOSETRON [Concomitant]
     Active Substance: PALONOSETRON
     Indication: CHEMOTHERAPY
     Dosage: (0.25 MG,1 IN 3 WK)
     Route: 042
     Dates: start: 20160205
  4. DIPHENHYDRAMINE. [Concomitant]
     Active Substance: DIPHENHYDRAMINE
     Indication: PREMEDICATION
     Dosage: (25 MG,1 IN 3 WK)
     Route: 042
     Dates: start: 20160202
  5. CARBOPLATIN. [Suspect]
     Active Substance: CARBOPLATIN
     Indication: NEOPLASM
     Dosage: DOSE- AUC 6;DAY 1 OF 21 DAY CYCLE
     Route: 042
     Dates: start: 20160209
  6. DEXAMETHASONE. [Concomitant]
     Active Substance: DEXAMETHASONE
     Indication: PREMEDICATION
     Dosage: (10 MG,1 IN 3 WK)
     Route: 042
     Dates: start: 20160202
  7. TRAMADOL. [Concomitant]
     Active Substance: TRAMADOL
     Indication: PROCEDURAL PAIN
     Dosage: 50MG
     Route: 048
     Dates: start: 20160114
  8. FOSAPREPITANT [Concomitant]
     Active Substance: FOSAPREPITANT
     Indication: PREMEDICATION
     Dosage: (150 MG,1 IN 3 WK)
     Route: 042
     Dates: start: 20160202
  9. TAXOTERE [Suspect]
     Active Substance: DOCETAXEL
     Indication: NEOPLASM
     Route: 042
     Dates: start: 20160209
  10. PALONOSETRON [Concomitant]
     Active Substance: PALONOSETRON
     Indication: PREMEDICATION
     Dosage: (0.25 MG,1 IN 3 WK)
     Route: 042
     Dates: start: 20160205
  11. FAMOTIDINE. [Concomitant]
     Active Substance: FAMOTIDINE
     Indication: PREMEDICATION
     Dosage: (20 MG,1 IN 3 WK)
     Route: 042
     Dates: start: 20160202
  12. PACLITAXEL. [Suspect]
     Active Substance: PACLITAXEL
     Indication: NEOPLASM
     Route: 042
     Dates: start: 20160202
  13. DEXAMETHASONE. [Concomitant]
     Active Substance: DEXAMETHASONE
     Indication: CHEMOTHERAPY
     Dosage: (10 MG,1 IN 3 WK)
     Route: 042
     Dates: start: 20160202
  14. FAMOTIDINE. [Concomitant]
     Active Substance: FAMOTIDINE
     Indication: CHEMOTHERAPY
     Dosage: (20 MG,1 IN 3 WK)
     Route: 042
     Dates: start: 20160202
  15. DIPHENHYDRAMINE. [Concomitant]
     Active Substance: DIPHENHYDRAMINE
     Indication: CHEMOTHERAPY
     Dosage: (25 MG,1 IN 3 WK)
     Route: 042
     Dates: start: 20160202
  16. FOSAPREPITANT [Concomitant]
     Active Substance: FOSAPREPITANT
     Indication: CHEMOTHERAPY
     Dosage: (150 MG,1 IN 3 WK)
     Route: 042
     Dates: start: 20160202

REACTIONS (3)
  - Neutropenia [Recovered/Resolved]
  - Pyrexia [Recovered/Resolved]
  - Pelvic abscess [Recovered/Resolved]

NARRATIVE: CASE EVENT DATE: 20160216
